FAERS Safety Report 11810037 (Version 1)
Quarter: 2015Q4

REPORT INFORMATION
  Report Type: Spontaneous
  Country: IN (occurrence: IN)
  Receive Date: 20151208
  Receipt Date: 20151208
  Transmission Date: 20160305
  Serious: Yes (Other)
  Sender: FDA-Public Use
  Company Number: IN-SUN PHARMACEUTICAL INDUSTRIES LTD-2015R1-107320

PATIENT
  Age: 29 Year
  Sex: Female

DRUGS (1)
  1. PHENYTOIN. [Suspect]
     Active Substance: PHENYTOIN
     Indication: SEIZURE
     Dosage: 300 MG, DAILY
     Route: 065

REACTIONS (4)
  - Osteomalacia [Recovering/Resolving]
  - Vitamin D deficiency [Recovered/Resolved]
  - Incorrect drug administration duration [Recovered/Resolved]
  - Hyperparathyroidism secondary [Recovering/Resolving]
